FAERS Safety Report 5389702-0 (Version None)
Quarter: 2007Q3

REPORT INFORMATION
  Report Type: 
  Country: None (occurrence: None)
  Receive Date: 20070717
  Receipt Date: 20070709
  Transmission Date: 20080115
  Serious: Yes (Hospitalization)
  Sender: FDA-Public Use
  Company Number: US-AMGEN-STX233256

PATIENT
  Sex: Female

DRUGS (3)
  1. ENBREL [Suspect]
     Indication: RHEUMATOID ARTHRITIS
     Route: 058
     Dates: start: 20040901
  2. PLAQUENIL [Concomitant]
     Route: 065
     Dates: start: 20040601
  3. METHOTREXATE [Concomitant]
     Route: 058
     Dates: start: 20040601

REACTIONS (2)
  - OESOPHAGEAL SPASM [None]
  - RHEUMATOID ARTHRITIS [None]
